FAERS Safety Report 11906338 (Version 2)
Quarter: 2016Q1

REPORT INFORMATION
  Report Type: Spontaneous
  Country: US (occurrence: US)
  Receive Date: 20160111
  Receipt Date: 20160316
  Transmission Date: 20160526
  Serious: No
  Sender: FDA-Public Use
  Company Number: US-PFIZER INC-2015456548

PATIENT
  Age: 43 Year
  Sex: Female

DRUGS (5)
  1. LODINE [Concomitant]
     Active Substance: ETODOLAC
     Dosage: UNK
     Dates: start: 20150117
  2. METHOCARBAM [Concomitant]
     Dosage: UNK
     Dates: start: 20150227
  3. XELJANZ [Suspect]
     Active Substance: TOFACITINIB CITRATE
     Indication: PSORIATIC ARTHROPATHY
     Dosage: 5 MG, 2X/DAY
     Route: 048
     Dates: start: 201511, end: 20151204
  4. XELJANZ [Suspect]
     Active Substance: TOFACITINIB CITRATE
     Indication: ANTINUCLEAR ANTIBODY POSITIVE
  5. XELJANZ [Suspect]
     Active Substance: TOFACITINIB CITRATE
     Indication: FATIGUE

REACTIONS (3)
  - Abdominal discomfort [Recovered/Resolved]
  - Urticaria [Recovered/Resolved]
  - Product use issue [Unknown]

NARRATIVE: CASE EVENT DATE: 20151106
